FAERS Safety Report 9148482 (Version 3)
Quarter: 2013Q2

REPORT INFORMATION
  Report Type: Spontaneous
  Country: FR (occurrence: FR)
  Receive Date: 20130308
  Receipt Date: 20130404
  Transmission Date: 20140414
  Serious: Yes (Death, Other)
  Sender: FDA-Public Use
  Company Number: FR-JNJFOC-20130216686

PATIENT
  Age: 89 Year
  Sex: Female

DRUGS (9)
  1. XARELTO [Suspect]
     Indication: ATRIAL FIBRILLATION
     Route: 048
     Dates: start: 20130113
  2. XARELTO [Suspect]
     Indication: CEREBROVASCULAR ACCIDENT PROPHYLAXIS
     Route: 048
     Dates: start: 20130113
  3. SURGAM [Concomitant]
     Indication: ANALGESIC THERAPY
     Route: 065
  4. OROCAL [Concomitant]
     Route: 065
  5. SOTALEX [Concomitant]
     Route: 065
  6. AUGMENTIN [Concomitant]
     Route: 065
  7. HEPARIN [Concomitant]
     Route: 065
  8. DAFALGAN [Concomitant]
     Indication: ANALGESIC THERAPY
     Route: 065
  9. VITAMIN D3 [Concomitant]
     Route: 065

REACTIONS (3)
  - Sudden death [Fatal]
  - Dyspnoea [Fatal]
  - Fatigue [Fatal]
